FAERS Safety Report 8256478-9 (Version None)
Quarter: 2012Q1

REPORT INFORMATION
  Report Type: 
  Country: None (occurrence: None)
  Receive Date: 20120330
  Receipt Date: 20120323
  Transmission Date: 20120608
  Serious: Yes (Other)
  Sender: FDA-Public Use
  Company Number: 2012SP014532

PATIENT
  Age: 73 Year
  Sex: Male
  Weight: 72.7 kg

DRUGS (8)
  1. UREA (UREA /00481901/) [Suspect]
     Indication: DRY SKIN
     Dates: start: 20110101, end: 20120101
  2. ELOCON [Suspect]
     Indication: DRY SKIN
     Dates: start: 20110101, end: 20120101
  3. HAVRIX [Suspect]
     Indication: PROPHYLAXIS
     Dosage: 1 DF;QD
  4. INFLUENZA VIRUS (INFLUENZA VACCINE) [Suspect]
     Indication: PROPHYLAXIS
     Dosage: 1 DF;QD
  5. BETAMETHASONE [Suspect]
     Indication: DRY SKIN
     Dates: start: 20110101, end: 20120101
  6. AQUEOUS CREAM (PHENOXYETHANOL) [Suspect]
     Indication: DRY SKIN
     Dates: start: 20110101, end: 20120101
  7. MENTHOL (MENTHOL /00482701/) [Suspect]
     Indication: DRY SKIN
     Dates: start: 20110101, end: 20120101
  8. REVAXIS (REVAXIS /01525501/) [Suspect]
     Indication: PROPHYLAXIS
     Dosage: 1 DF;QD

REACTIONS (1)
  - LOSS OF CONSCIOUSNESS [None]
